FAERS Safety Report 19935156 (Version 1)
Quarter: 2021Q4

REPORT INFORMATION
  Report Type: Spontaneous
  Country: US (occurrence: US)
  Receive Date: 20211008
  Receipt Date: 20211008
  Transmission Date: 20220303
  Serious: No
  Sender: FDA-Public Use
  Company Number: US-SA-SAC20211004000882

PATIENT
  Sex: Male

DRUGS (1)
  1. DUPIXENT [Suspect]
     Active Substance: DUPILUMAB
     Indication: Nasal polyps
     Dosage: 300 MG, QW
     Route: 058

REACTIONS (6)
  - Vision blurred [Unknown]
  - Lacrimation increased [Unknown]
  - Myalgia [Unknown]
  - Arthralgia [Unknown]
  - Overdose [Unknown]
  - Product use issue [Unknown]
